FAERS Safety Report 15279893 (Version 1)
Quarter: 2018Q3

REPORT INFORMATION
  Report Type: Spontaneous
  Country: US (occurrence: US)
  Receive Date: 20180815
  Receipt Date: 20180815
  Transmission Date: 20181010
  Serious: Yes (Other)
  Sender: FDA-Public Use
  Company Number: US-BAYER-2018-148261

PATIENT
  Sex: Female

DRUGS (1)
  1. BAYER ASPIRIN [Suspect]
     Active Substance: ASPIRIN
     Dosage: 1?2 TABLETS DAILY
     Route: 065

REACTIONS (2)
  - Drug dependence [Unknown]
  - Product physical issue [None]
